FAERS Safety Report 4935092-4 (Version None)
Quarter: 2006Q1

REPORT INFORMATION
  Report Type: 
  Country: None (occurrence: None)
  Receive Date: 20060302
  Receipt Date: 20060214
  Transmission Date: 20060701
  Serious: Yes (Hospitalization, Other)
  Sender: FDA-Public Use
  Company Number: SU-2005-004289

PATIENT
  Age: 62 Year
  Sex: Female
  Weight: 63.5036 kg

DRUGS (15)
  1. WELCHOL [Suspect]
     Indication: DIABETES MELLITUS NON-INSULIN-DEPENDENT
     Dosage: 3750 MG QD PO
     Route: 048
     Dates: start: 20050523, end: 20051113
  2. METFORMIN [Concomitant]
  3. GLIMEPIRIDE [Concomitant]
  4. COSAMIN [Concomitant]
  5. MULTIVITAMIN [Concomitant]
  6. METAMUCIL-2 [Concomitant]
  7. BECLOMETHASONE DIPROPIONATE [Concomitant]
  8. ALBUTEROL [Concomitant]
  9. ACCUHIST LA [Concomitant]
  10. OLOPATADINE [Concomitant]
  11. ZESTORETIC [Concomitant]
  12. IBUPROFEN [Concomitant]
  13. NASONEX [Concomitant]
  14. ESOMEPRAZOLE [Concomitant]
  15. FLUTICASONE PROPIONATE [Concomitant]

REACTIONS (4)
  - CONDITION AGGRAVATED [None]
  - DIVERTICULITIS [None]
  - FACIAL PALSY [None]
  - HEPATIC STEATOSIS [None]
